FAERS Safety Report 14226933 (Version 1)
Quarter: 2017Q4

REPORT INFORMATION
  Report Type: Report from Study
  Country: US (occurrence: US)
  Receive Date: 20171127
  Receipt Date: 20171127
  Transmission Date: 20180321
  Serious: Yes (Hospitalization)
  Sender: FDA-Public Use
  Company Number: US-PFIZER INC-2017504125

PATIENT
  Age: 47 Year
  Sex: Female
  Weight: 71.2 kg

DRUGS (24)
  1. VICODIN [Concomitant]
     Active Substance: ACETAMINOPHEN\HYDROCODONE BITARTRATE
     Indication: MIGRAINE
     Dosage: 1 DF= 500MG ACETAMINOPHEN + 5MG HYDROCODONE
     Route: 048
     Dates: start: 1990, end: 20170508
  2. ADVIL COLD AND SINUS [Concomitant]
     Active Substance: IBUPROFEN\PSEUDOEPHEDRINE HYDROCHLORIDE
     Indication: NASOPHARYNGITIS
     Dosage: 1 CAPLET, UNK
     Route: 048
     Dates: start: 20160826, end: 20160906
  3. DOXYCYCLIN /00055701/ [Concomitant]
     Active Substance: DOXYCYCLINE
     Indication: UPPER RESPIRATORY TRACT INFECTION
     Dosage: 200 MG, PER DAY
     Route: 048
     Dates: start: 20170331, end: 20170420
  4. ALBUTEROL /00139501/ [Concomitant]
     Active Substance: ALBUTEROL
     Dosage: 2.5 MG, PER DAY
     Route: 055
     Dates: start: 20170316, end: 20170316
  5. METOPROLOL. [Concomitant]
     Active Substance: METOPROLOL
     Indication: HYPERTENSION
     Dosage: 100 MG, PER DAY
     Route: 048
     Dates: start: 20140908, end: 20170514
  6. DILAUDID [Concomitant]
     Active Substance: HYDROMORPHONE HYDROCHLORIDE
     Indication: MIGRAINE
     Dosage: UNK
     Route: 048
     Dates: start: 201511, end: 20170508
  7. DILAUDID [Concomitant]
     Active Substance: HYDROMORPHONE HYDROCHLORIDE
     Indication: BACK PAIN
     Dosage: 2 MG, PER DAY
     Route: 048
     Dates: start: 20160727, end: 20160727
  8. ALBUTEROL /00139501/ [Concomitant]
     Active Substance: ALBUTEROL
     Indication: VIRAL UPPER RESPIRATORY TRACT INFECTION
     Dosage: UNK
     Route: 055
     Dates: start: 20170316, end: 20170317
  9. EXCEDRIN MIGRAINE [Concomitant]
     Active Substance: ACETAMINOPHEN\ASPIRIN\CAFFEINE
     Indication: MIGRAINE
     Dosage: 3 TABLETS, UNK
     Route: 048
     Dates: start: 2000, end: 20170508
  10. IBUPROFEN. [Concomitant]
     Active Substance: IBUPROFEN
     Indication: MIGRAINE
     Dosage: UNK
     Route: 048
     Dates: start: 1984, end: 20170508
  11. MUCINEX [Concomitant]
     Active Substance: GUAIFENESIN
     Indication: VIRAL UPPER RESPIRATORY TRACT INFECTION
     Dosage: 1 DF = 20MG DEXTROMETORPHAN HBR + 400MG GUAIFENESIN + 10MG PHENYLEPHRINE
     Route: 048
     Dates: start: 20170122, end: 20170129
  12. PREDNISONE. [Concomitant]
     Active Substance: PREDNISONE
     Indication: UPPER RESPIRATORY TRACT INFECTION
     Dosage: 10 MG, PER DAY
     Route: 048
     Dates: start: 20170305, end: 20170309
  13. AMOXICILLIN. [Concomitant]
     Active Substance: AMOXICILLIN
     Indication: SINUSITIS
     Dosage: 1000 MG, PER DAY
     Route: 048
     Dates: start: 20170201, end: 20170208
  14. HYDROCHLOROTHIAZIDE. [Concomitant]
     Active Substance: HYDROCHLOROTHIAZIDE
     Indication: HYPERTENSION
     Dosage: 50 MG, PER DAY
     Route: 048
     Dates: start: 2006, end: 20170508
  15. TYLENOL PM [Concomitant]
     Active Substance: ACETAMINOPHEN\DIPHENHYDRAMINE
     Indication: BACK PAIN
     Dosage: 2 TABLETS, UNK
     Route: 048
     Dates: start: 201504, end: 20170508
  16. CELEBREX [Suspect]
     Active Substance: CELECOXIB
     Indication: PROCEDURAL PAIN
     Dosage: UNK
     Route: 048
     Dates: start: 20170504, end: 20170508
  17. VICKS NYQUIL D COLD AND FLU NIGHTTIME RELIEF [Concomitant]
     Active Substance: ACETAMINOPHEN\DEXTROMETHORPHAN HYDROBROMIDE\DOXYLAMINE SUCCINATE\PSEUDOEPHEDRINE HYDROCHLORIDE
     Indication: VIRAL UPPER RESPIRATORY TRACT INFECTION
     Dosage: 2 LIQUICAPS, UNK
     Route: 048
     Dates: start: 20170122, end: 20170129
  18. FAMCICLOVIR. [Concomitant]
     Active Substance: FAMCICLOVIR
     Indication: HERPES ZOSTER
     Dosage: 1500 MG, PER DAY
     Route: 048
     Dates: start: 20161220, end: 20161227
  19. DOXYCYCLIN /00055701/ [Concomitant]
     Active Substance: DOXYCYCLINE
     Indication: SINUSITIS
  20. TYLENOL COLD + SINUS [Concomitant]
     Indication: VIRAL UPPER RESPIRATORY TRACT INFECTION
     Dosage: 2 CAPLET, UNK
     Route: 048
     Dates: start: 20161024, end: 20161030
  21. VICKS DAYQUIL [Concomitant]
     Active Substance: DEXTROMETHORPHAN HYDROBROMIDE\GUAIFENESIN
     Indication: VIRAL UPPER RESPIRATORY TRACT INFECTION
     Dosage: 2 LIQUICAPS, UNK
     Route: 048
     Dates: start: 20161031, end: 20161105
  22. VICKS NYQUIL D COLD AND FLU NIGHTTIME RELIEF [Concomitant]
     Active Substance: ACETAMINOPHEN\DEXTROMETHORPHAN HYDROBROMIDE\DOXYLAMINE SUCCINATE\PSEUDOEPHEDRINE HYDROCHLORIDE
     Dosage: 2 LIQUICAPS, UNK
     Route: 048
     Dates: start: 20161031, end: 20161105
  23. DOXYCYCLIN /00055701/ [Concomitant]
     Active Substance: DOXYCYCLINE
     Indication: BRONCHITIS
     Dosage: 200 MG, PER DAY
     Route: 048
     Dates: start: 20161220, end: 20161227
  24. PREDNISONE. [Concomitant]
     Active Substance: PREDNISONE
     Dosage: 40 MG, PER DAY
     Route: 048
     Dates: start: 20170228, end: 20170304

REACTIONS (1)
  - Multiple organ dysfunction syndrome [Recovered/Resolved with Sequelae]

NARRATIVE: CASE EVENT DATE: 20170508
